FAERS Safety Report 13584382 (Version 1)
Quarter: 2017Q2

REPORT INFORMATION
  Report Type: Spontaneous
  Country: US (occurrence: US)
  Receive Date: 20170526
  Receipt Date: 20170526
  Transmission Date: 20170830
  Serious: Yes (Hospitalization)
  Sender: FDA-Public Use
  Company Number: US-BION-006333

PATIENT
  Age: 64 Year
  Sex: Male

DRUGS (11)
  1. MIRTAZAPINE. [Concomitant]
     Active Substance: MIRTAZAPINE
     Dosage: 30 MG QHS (EVERY BEDTIME)
  2. PRAZOSIN. [Concomitant]
     Active Substance: PRAZOSIN
     Dosage: 7MG QHS (EVERY BEDTIME)
  3. CARBIDOPA/LEVODOPA [Concomitant]
     Dosage: 25/100 MG QID
  4. PRAMIPEXOLE/PRAMIPEXOLE DIHYDROCHLORIDE [Concomitant]
  5. ROTIGOTINE [Concomitant]
     Active Substance: ROTIGOTINE
     Dosage: ROTIGOTINE PATCH 2 MG/24
  6. TAMSULOSIN/TAMSULOSIN HYDROCHLORIDE [Concomitant]
  7. LEVOTHYROXINE. [Concomitant]
     Active Substance: LEVOTHYROXINE
  8. OXYBUTYNIN [Concomitant]
     Active Substance: OXYBUTYNIN
  9. AMANTADINE HYDROCHLORIDE. [Suspect]
     Active Substance: AMANTADINE HYDROCHLORIDE
     Indication: PARKINSON^S DISEASE
  10. SELEGILINE [Concomitant]
     Active Substance: SELEGILINE
  11. ENTACAPONE. [Concomitant]
     Active Substance: ENTACAPONE

REACTIONS (7)
  - Insomnia [Recovered/Resolved]
  - Agitation [Recovered/Resolved]
  - Hallucination, visual [Recovered/Resolved]
  - Hallucination, tactile [Recovered/Resolved]
  - Withdrawal syndrome [Recovered/Resolved]
  - Cognitive disorder [Recovered/Resolved]
  - Disorientation [Recovered/Resolved]
